FAERS Safety Report 10206524 (Version 13)
Quarter: 2016Q1

REPORT INFORMATION
  Report Type: Spontaneous
  Country: US (occurrence: US)
  Receive Date: 20140530
  Receipt Date: 20160317
  Transmission Date: 20160525
  Serious: Yes (Death, Hospitalization, Other)
  Sender: FDA-Public Use
  Company Number: US-GLAXOSMITHKLINE-A1023783A

PATIENT
  Age: 57 Year
  Sex: Female
  Weight: 68.27 kg

DRUGS (15)
  1. OXYGEN. [Suspect]
     Active Substance: OXYGEN
     Indication: PRODUCT USED FOR UNKNOWN INDICATION
     Dosage: UNK
     Dates: end: 20160301
  2. FLOLAN [Suspect]
     Active Substance: EPOPROSTENOL SODIUM
     Dosage: 58 NG/KG/MIN, CONCENTRATION 75,000 NG/ML, PUMP RATE 81 ML/DAY, VIAL STRENGTH 1.5 MG,CO
     Route: 042
  3. FLOLAN [Suspect]
     Active Substance: EPOPROSTENOL SODIUM
     Dosage: 50 NG/KG/MIN, CO
  4. FLOLAN [Suspect]
     Active Substance: EPOPROSTENOL SODIUM
     Dosage: 50 NG/KG/MIN CONTINUOUS
     Route: 042
     Dates: start: 20080313
  5. FLOLAN [Suspect]
     Active Substance: EPOPROSTENOL SODIUM
     Dosage: UNK
     Dates: start: 20080313, end: 20160301
  6. FLOLAN [Suspect]
     Active Substance: EPOPROSTENOL SODIUM
     Dosage: 50 NG/KG/MIN CONTINUOUS
     Route: 042
     Dates: start: 20080313
  7. FLOLAN [Suspect]
     Active Substance: EPOPROSTENOL SODIUM
     Dosage: UNK
     Dates: start: 20080314
  8. FLOLAN [Suspect]
     Active Substance: EPOPROSTENOL SODIUM
     Dosage: 50 NG/KG/MIN, CO
     Dates: start: 20080313
  9. COUMADIN [Concomitant]
     Active Substance: WARFARIN SODIUM
  10. TRACLEER [Concomitant]
     Active Substance: BOSENTAN
  11. FLOLAN [Suspect]
     Active Substance: EPOPROSTENOL SODIUM
     Indication: COR PULMONALE CHRONIC
     Dosage: 58 NG/KG/MIN CO, PUMP RATE 81 ML/DAY, CONCENTRATION 75, 000 NG/ML, 1.5 MG VIAL
     Route: 042
     Dates: start: 20080314
  12. FLOLAN [Suspect]
     Active Substance: EPOPROSTENOL SODIUM
     Indication: PULMONARY HYPERTENSION
     Dosage: UNK
     Dates: start: 20080314
  13. FLOLAN [Suspect]
     Active Substance: EPOPROSTENOL SODIUM
     Dosage: UNK
     Dates: start: 20080314
  14. FLOLAN [Suspect]
     Active Substance: EPOPROSTENOL SODIUM
     Dosage: 58 DF, UNK
  15. FLOLAN [Suspect]
     Active Substance: EPOPROSTENOL SODIUM
     Dosage: 50 NG/KG/MIN, CONCENTRATION 60,000 NG/ML, PUMP RATE 88 ML/DAY, VIAL STRENGTH 1.5 MG,CO
     Dates: start: 20080313

REACTIONS (11)
  - Respiratory failure [Not Recovered/Not Resolved]
  - Hyperventilation [Unknown]
  - Pain [Unknown]
  - Skin irritation [Unknown]
  - Dyspnoea [Unknown]
  - Application site dryness [Unknown]
  - Application site irritation [Recovering/Resolving]
  - Nasopharyngitis [Unknown]
  - Lung disorder [Fatal]
  - Pulmonary arterial hypertension [Unknown]
  - Product supply issue [Unknown]

NARRATIVE: CASE EVENT DATE: 20160126
